FAERS Safety Report 21509285 (Version 1)
Quarter: 2022Q4

REPORT INFORMATION
  Report Type: Spontaneous
  Country: GB (occurrence: GB)
  Receive Date: 20221026
  Receipt Date: 20221026
  Transmission Date: 20230112
  Serious: Yes (Other)
  Sender: FDA-Public Use
  Company Number: None

PATIENT
  Sex: Female

DRUGS (8)
  1. PREDNISOLONE [Suspect]
     Active Substance: PREDNISOLONE
     Indication: Product used for unknown indication
  2. SULFASALAZINE [Concomitant]
     Active Substance: SULFASALAZINE
  3. FOLIC ACID [Concomitant]
     Active Substance: FOLIC ACID
  4. OLOPATADINE [Concomitant]
     Active Substance: OLOPATADINE
  5. ETANERCEPT [Concomitant]
     Active Substance: ETANERCEPT
  6. BASSETS SOFT AND CHEWY ACTIVE HEALTH MULTIVITAMINS WITH MINERALS [Concomitant]
  7. CYCLOSPORINE [Concomitant]
     Active Substance: CYCLOSPORINE
  8. METHOTREXATE [Concomitant]
     Active Substance: METHOTREXATE

REACTIONS (3)
  - Tinnitus [Not Recovered/Not Resolved]
  - Ocular hyperaemia [Not Recovered/Not Resolved]
  - Eye pain [Not Recovered/Not Resolved]

NARRATIVE: CASE EVENT DATE: 20221008
